FAERS Safety Report 8843436 (Version 1)
Quarter: 2012Q4

REPORT INFORMATION
  Report Type: 
  Country: US (occurrence: US)
  Receive Date: 20121016
  Receipt Date: 20121016
  Transmission Date: 20130627
  Serious: No
  Sender: FDA-Public Use
  Company Number: US-B.I. PHARMACEUTICALS,INC./RIDGEFIELD-2012-BP-24393BP

PATIENT
  Age: 58 Year
  Sex: Male
  Weight: 118 kg

DRUGS (7)
  1. SPIRIVA [Suspect]
     Indication: PNEUMONIA
     Dosage: 18 mcg
     Route: 055
     Dates: start: 20120922
  2. SPIRIVA [Suspect]
     Route: 048
     Dates: start: 20121003, end: 20121003
  3. METFORMIN [Concomitant]
     Indication: DIABETES MELLITUS
     Dosage: 2000 mg
     Route: 048
     Dates: start: 2009
  4. DULERA [Concomitant]
     Indication: PNEUMONIA
     Dosage: 4 puf
     Route: 055
     Dates: start: 20120922
  5. CIPRO [Concomitant]
     Indication: PNEUMONIA
     Dosage: 1000 mg
     Route: 048
     Dates: start: 20120912
  6. LANTUS [Concomitant]
     Indication: DIABETES MELLITUS
     Route: 058
     Dates: start: 2009
  7. HUMALOG [Concomitant]
     Indication: DIABETES MELLITUS
     Route: 058
     Dates: start: 2009

REACTIONS (1)
  - Incorrect route of drug administration [Recovered/Resolved]
